FAERS Safety Report 4532265-X (Version None)
Quarter: 2005Q1

REPORT INFORMATION
  Report Type: 
  Country: None (occurrence: None)
  Receive Date: 20041206
  Receipt Date: 20040917
  Transmission Date: 20050727
  Serious: No
  Sender: FDA-Public Use
  Company Number: USA040978656

PATIENT
  Age: 45 Year
  Sex: Female

DRUGS (2)
  1. CYMBALTA [Suspect]
     Indication: DEPRESSION
     Dosage: 30 MG/1  DAY
  2. UNSPECIFIED MIGRAINE MEDICATION (S) [Concomitant]

REACTIONS (1)
  - MIGRAINE [None]
